FAERS Safety Report 8176840-2 (Version None)
Quarter: 2012Q1

REPORT INFORMATION
  Report Type: 
  Country: None (occurrence: None)
  Receive Date: 20120124
  Receipt Date: 20110811
  Transmission Date: 20120608
  Serious: Yes (Hospitalization)
  Sender: FDA-Public Use
  Company Number: WAES 1108USA01568

PATIENT
  Age: 86 Year
  Sex: Male

DRUGS (1)
  1. INVANZ [Suspect]
     Indication: ABDOMINAL PAIN UPPER
     Dosage: 1 GM/1X/IV
     Route: 042

REACTIONS (2)
  - HOT FLUSH [None]
  - HYPERSENSITIVITY [None]
